FAERS Safety Report 24467497 (Version 1)
Quarter: 2024Q4

REPORT INFORMATION
  Report Type: Report from Study
  Country: US (occurrence: US)
  Receive Date: 20241018
  Receipt Date: 20241018
  Transmission Date: 20250115
  Serious: No
  Sender: ROCHE
  Company Number: US-ROCHE-3574565

PATIENT
  Age: 67 Year
  Sex: Female

DRUGS (18)
  1. XOLAIR [Suspect]
     Active Substance: OMALIZUMAB
     Indication: Urticaria
     Route: 065
  2. FAMOTIDINE [Concomitant]
     Active Substance: FAMOTIDINE
  3. FLUTICASONE [Concomitant]
     Active Substance: FLUTICASONE
     Dosage: 2 SPRAY EACH NOSTRIL DAILY
  4. LEVOCETIRIZINE HYDROCHLORIDE [Concomitant]
     Active Substance: LEVOCETIRIZINE HYDROCHLORIDE
  5. MUCINEX [Concomitant]
     Active Substance: GUAIFENESIN
  6. OMEPRAZOLE [Concomitant]
     Active Substance: OMEPRAZOLE
     Route: 048
  7. WIXELA INHUB [Concomitant]
     Active Substance: FLUTICASONE PROPIONATE\SALMETEROL XINAFOATE
     Dosage: ONE INHALATION EVERY 2 HR
  8. CETIRIZINE [Concomitant]
     Active Substance: CETIRIZINE HYDROCHLORIDE
  9. ACYCLOVIR [Concomitant]
     Active Substance: ACYCLOVIR
  10. CLOTRIMAZOLE [Concomitant]
     Active Substance: CLOTRIMAZOLE
  11. VITAMIN D2 [Concomitant]
     Active Substance: ERGOCALCIFEROL
  12. DULOXETINE [Concomitant]
     Active Substance: DULOXETINE
  13. ZOLPIDEM TARTRATE [Concomitant]
     Active Substance: ZOLPIDEM TARTRATE
  14. LEVOTHYROXINE [Concomitant]
     Active Substance: LEVOTHYROXINE
  15. ROSUVASTATIN [Concomitant]
     Active Substance: ROSUVASTATIN
  16. PREGABALIN [Concomitant]
     Active Substance: PREGABALIN
  17. LOPERAMIDE HYDROCHLORIDE [Concomitant]
     Active Substance: LOPERAMIDE HYDROCHLORIDE
  18. EPIPEN [Concomitant]
     Active Substance: EPINEPHRINE
     Indication: Hypersensitivity

REACTIONS (16)
  - Rhinitis allergic [Unknown]
  - Urticaria [Unknown]
  - Arthralgia [Unknown]
  - Fibromyalgia [Unknown]
  - Erythema [Unknown]
  - Rhinorrhoea [Unknown]
  - Nasal congestion [Unknown]
  - Throat irritation [Unknown]
  - Sinus pain [Unknown]
  - Upper-airway cough syndrome [Unknown]
  - Oropharyngeal pain [Unknown]
  - Dysphonia [Unknown]
  - Headache [Unknown]
  - Cough [Unknown]
  - Conjunctivitis allergic [Unknown]
  - Off label use [Unknown]
